FAERS Safety Report 9139105 (Version 1)
Quarter: 2013Q1

REPORT INFORMATION
  Report Type: Spontaneous
  Country: US (occurrence: US)
  Receive Date: 20130305
  Receipt Date: 20130305
  Transmission Date: 20140127
  Serious: Yes (Life-Threatening, Hospitalization)
  Sender: FDA-Public Use
  Company Number: US-MYLANLABS-2013S1004107

PATIENT
  Age: 47 Year
  Sex: Male

DRUGS (5)
  1. AZITHROMYCIN [Suspect]
     Indication: UPPER RESPIRATORY TRACT INFECTION
     Route: 065
  2. METHADONE [Interacting]
     Indication: DRUG DEPENDENCE
     Route: 048
  3. LISINOPRIL/HYDROCHLOROTHIAZIDE [Concomitant]
     Dosage: 20/12.5MG ONCE DAILY
     Route: 065
  4. BENZONATATE [Concomitant]
     Dosage: AS NEEDED
     Route: 065
  5. PARACETAMOL W/DEXTROMETHORPHAN/DOXYLAMINE [Concomitant]
     Indication: NASOPHARYNGITIS
     Dosage: OTC COLD MEDICINE
     Route: 065

REACTIONS (2)
  - Cardiac arrest [Recovered/Resolved]
  - Electrocardiogram QT prolonged [Recovered/Resolved]
